FAERS Safety Report 16399820 (Version 11)
Quarter: 2022Q1

REPORT INFORMATION
  Report Type: Spontaneous
  Country: US (occurrence: US)
  Receive Date: 20190606
  Receipt Date: 20220111
  Transmission Date: 20220423
  Serious: Yes (Other)
  Sender: FDA-Public Use
  Company Number: US-SA-2019SA153621

PATIENT
  Age: 29 Year
  Sex: Male
  Weight: 112 kg

DRUGS (4)
  1. ELOCTATE [Suspect]
     Active Substance: (1-743)-(1638-2332)-BLOOD-COAGULATION FACTOR VIII (SYNTHETIC HUMAN) FUSION PROTEIN WITH IMMUNOGLOBUL
     Indication: Factor VIII deficiency
     Dosage: 5600 IU
     Route: 041
     Dates: start: 20190213
  2. ELOCTATE [Suspect]
     Active Substance: (1-743)-(1638-2332)-BLOOD-COAGULATION FACTOR VIII (SYNTHETIC HUMAN) FUSION PROTEIN WITH IMMUNOGLOBUL
     Indication: Factor VIII deficiency
     Dosage: 5600 IU
     Route: 041
     Dates: start: 20190213
  3. ELOCTATE [Suspect]
     Active Substance: (1-743)-(1638-2332)-BLOOD-COAGULATION FACTOR VIII (SYNTHETIC HUMAN) FUSION PROTEIN WITH IMMUNOGLOBUL
     Dosage: 5600 UNIT NOT SPECIFIED, Q4D
     Route: 042
  4. ELOCTATE [Suspect]
     Active Substance: (1-743)-(1638-2332)-BLOOD-COAGULATION FACTOR VIII (SYNTHETIC HUMAN) FUSION PROTEIN WITH IMMUNOGLOBUL
     Dosage: 5600 UNIT NOT SPECIFIED, Q4D
     Route: 042

REACTIONS (9)
  - Haemorrhage [Recovered/Resolved]
  - Device delivery system issue [Recovering/Resolving]
  - Inappropriate schedule of product administration [Recovering/Resolving]
  - Repetitive strain injury [Unknown]
  - Arthropathy [Recovered/Resolved]
  - Joint injury [Recovered/Resolved]
  - Traumatic haemorrhage [Recovered/Resolved]
  - Product dose omission issue [Unknown]
  - Product preparation error [Unknown]

NARRATIVE: CASE EVENT DATE: 20200115
